FAERS Safety Report 25765304 (Version 1)
Quarter: 2025Q3

REPORT INFORMATION
  Report Type: Spontaneous
  Country: EU (occurrence: EU)
  Receive Date: 20250905
  Receipt Date: 20250905
  Transmission Date: 20251020
  Serious: Yes (Hospitalization)
  Sender: RANBAXY
  Company Number: EU-SUN PHARMACEUTICAL INDUSTRIES LTD-2025RR-525702

PATIENT
  Age: 46 Year
  Sex: Female

DRUGS (3)
  1. SERTRALINE [Suspect]
     Active Substance: SERTRALINE HYDROCHLORIDE
     Indication: Depression
     Dosage: 50 MILLIGRAM, QD
     Route: 048
     Dates: start: 20250509, end: 20250512
  2. OLANZAPINE [Concomitant]
     Active Substance: OLANZAPINE
     Indication: Major depression
     Dosage: 5 MILLIGRAM, QD
     Route: 048
  3. DELORAZEPAM [Concomitant]
     Active Substance: DELORAZEPAM
     Indication: Mixed anxiety and depressive disorder
     Route: 065

REACTIONS (1)
  - Psychomotor hyperactivity [Recovering/Resolving]

NARRATIVE: CASE EVENT DATE: 20250512
